FAERS Safety Report 20350078 (Version 1)
Quarter: 2022Q1

REPORT INFORMATION
  Report Type: Spontaneous
  Country: US (occurrence: None)
  Receive Date: 20220119
  Receipt Date: 20220119
  Transmission Date: 20220424
  Serious: No
  Sender: FDA-Public Use
  Company Number: None

PATIENT
  Age: 42 Year
  Sex: Male
  Weight: 112 kg

DRUGS (1)
  1. LIDOCAINE PAIN RELIEF GEL PATCH [Suspect]
     Active Substance: LIDOCAINE
     Indication: Pain
     Dates: start: 20210927, end: 20211021

REACTIONS (5)
  - Rash [None]
  - Swelling [None]
  - Application site vesicles [None]
  - Erythema multiforme [None]
  - Therapy cessation [None]

NARRATIVE: CASE EVENT DATE: 20211016
